FAERS Safety Report 5767908-6 (Version None)
Quarter: 2008Q2

REPORT INFORMATION
  Report Type: 
  Country: None (occurrence: None)
  Receive Date: 20080612
  Receipt Date: 20080531
  Transmission Date: 20081010
  Serious: Yes (Hospitalization)
  Sender: FDA-Public Use
  Company Number: US-PFIZER INC-2008046012

PATIENT
  Age: 72 Year
  Sex: Female
  Weight: 69.5 kg

DRUGS (3)
  1. SUTENT [Suspect]
     Indication: ENDOMETRIAL CANCER
     Route: 048
  2. DURAGESIC-100 [Suspect]
  3. VICODIN [Suspect]

REACTIONS (3)
  - CONFUSIONAL STATE [None]
  - DEHYDRATION [None]
  - MUSCULAR WEAKNESS [None]
